FAERS Safety Report 5650406-8 (Version None)
Quarter: 2008Q1

REPORT INFORMATION
  Report Type: 
  Country: None (occurrence: None)
  Receive Date: 20080304
  Receipt Date: 20080304
  Transmission Date: 20080703
  Serious: Yes (Death, Hospitalization)
  Sender: FDA-Public Use
  Company Number: None

PATIENT
  Age: 72 Year
  Sex: Male
  Weight: 90.1 kg

DRUGS (15)
  1. EZETIMIBE/SIMVASTATIN 10/40 MERCK/SCHERING-PLOUGH [Suspect]
     Indication: HYPERLIPIDAEMIA
     Dosage: 10/40 DAILY PO
     Route: 048
  2. FENOFIBRATE [Suspect]
     Indication: HYPERLIPIDAEMIA
     Dosage: 54MG DAILY PO
     Route: 048
  3. MYCOPHENOLATE MOFETIL [Concomitant]
  4. QUININE SULFATE [Concomitant]
  5. LEVOTHYROXINE SODIUM [Concomitant]
  6. SIROLIMUS [Concomitant]
  7. OMEPRAZOLE [Concomitant]
  8. POTASSIUM CHLORIDE [Concomitant]
  9. AMLODIPINE [Concomitant]
  10. DIPYRIDAMOLE [Concomitant]
  11. TRIMETHOPRIM + SULFAMETHOXAZOLE [Concomitant]
  12. OYSTER SHELL CALCIUM + VITAMIN D [Concomitant]
  13. ASCORBIC ACID [Concomitant]
  14. ASPIRIN [Concomitant]
  15. THERAPEUTIC MULTIVITAMIN [Concomitant]

REACTIONS (2)
  - BLOOD CREATINE PHOSPHOKINASE INCREASED [None]
  - BLOOD CREATININE INCREASED [None]
